FAERS Safety Report 20149391 (Version 2)
Quarter: 2021Q4

REPORT INFORMATION
  Report Type: Other
  Country: JP (occurrence: JP)
  Receive Date: 20211205
  Receipt Date: 20211215
  Transmission Date: 20220303
  Serious: Yes (Hospitalization, Other)
  Sender: FDA-Public Use
  Company Number: JP-CHUGAI-2021029022

PATIENT
  Age: 60 Year
  Sex: Male

DRUGS (3)
  1. AVASTIN [Suspect]
     Active Substance: BEVACIZUMAB
     Indication: Colon cancer
     Dosage: UNK
     Route: 041
  2. XELODA [Suspect]
     Active Substance: CAPECITABINE
     Indication: Colon cancer
     Dosage: UNK
     Route: 048
  3. OXALIPLATIN [Concomitant]
     Active Substance: OXALIPLATIN
     Indication: Colon cancer
     Dosage: UNK
     Route: 041

REACTIONS (8)
  - Cheilitis [Unknown]
  - Stomatitis [Unknown]
  - Enterocolitis [Unknown]
  - Enzyme activity decreased [Recovering/Resolving]
  - Neutrophil count decreased [Unknown]
  - Small intestinal haemorrhage [Unknown]
  - Bacterial test positive [Unknown]
  - Urinary tract infection [Unknown]
